FAERS Safety Report 6838790-0 (Version None)
Quarter: 2010Q3

REPORT INFORMATION
  Report Type: 
  Country: None (occurrence: None)
  Receive Date: 20100713
  Receipt Date: 20070629
  Transmission Date: 20110219
  Serious: No
  Sender: FDA-Public Use
  Company Number: US-PFIZER INC-2007045670

PATIENT
  Sex: Female
  Weight: 60.3 kg

DRUGS (7)
  1. CHANTIX [Suspect]
     Indication: SMOKING CESSATION THERAPY
     Route: 048
     Dates: start: 20070528
  2. LORTAB [Concomitant]
  3. MORPHINE [Concomitant]
  4. RESTORIL [Concomitant]
     Route: 048
  5. XANAX [Concomitant]
     Route: 048
  6. SOMA [Concomitant]
     Route: 048
  7. PLAQUENIL [Concomitant]
     Route: 048

REACTIONS (8)
  - DYSPNOEA [None]
  - FATIGUE [None]
  - HEADACHE [None]
  - NAUSEA [None]
  - NIGHT SWEATS [None]
  - RASH [None]
  - SALIVARY HYPERSECRETION [None]
  - THINKING ABNORMAL [None]
